FAERS Safety Report 23355680 (Version 1)
Quarter: 2024Q1

REPORT INFORMATION
  Report Type: Spontaneous
  Country: FR (occurrence: FR)
  Receive Date: 20240102
  Receipt Date: 20240102
  Transmission Date: 20240410
  Serious: Yes (Hospitalization)
  Sender: FDA-Public Use
  Company Number: None

PATIENT
  Age: 3 Year
  Sex: Male
  Weight: 14.3 kg

DRUGS (2)
  1. WEGOVY [Suspect]
     Active Substance: SEMAGLUTIDE
     Indication: Product used for unknown indication
     Dosage: 1, DF, 1 INJECTION
     Route: 058
     Dates: start: 20231201, end: 20231201
  2. NGENLA [Suspect]
     Active Substance: SOMATROGON-GHLA
     Indication: Growth hormone deficiency
     Dosage: 1 DF, QW
     Route: 058
     Dates: start: 202212

REACTIONS (7)
  - Impaired gastric emptying [Recovering/Resolving]
  - Decreased appetite [Recovering/Resolving]
  - Ketosis [Recovering/Resolving]
  - Vomiting [Recovering/Resolving]
  - Wrong product administered [Recovered/Resolved]
  - Circumstance or information capable of leading to medication error [Recovered/Resolved]
  - Product name confusion [Recovered/Resolved]

NARRATIVE: CASE EVENT DATE: 20231201
